FAERS Safety Report 21890597 (Version 1)
Quarter: 2023Q1

REPORT INFORMATION
  Report Type: Report from Study
  Country: DE (occurrence: DE)
  Receive Date: 20230120
  Receipt Date: 20230120
  Transmission Date: 20230417
  Serious: Yes (Other)
  Sender: FDA-Public Use
  Company Number: DE-MYLANLABS-2023M1006827

PATIENT
  Sex: Male
  Weight: 2.27 kg

DRUGS (1)
  1. DEXMEDETOMIDINE [Suspect]
     Active Substance: DEXMEDETOMIDINE
     Indication: Sedative therapy
     Dosage: 1 MICROGRAM/KILOGRAM, QH; INTRAVENOUS INFUSION
     Route: 042

REACTIONS (2)
  - Bradycardia [Recovered/Resolved]
  - Off label use [Unknown]
